FAERS Safety Report 11908778 (Version 1)
Quarter: 2016Q1

REPORT INFORMATION
  Report Type: Spontaneous
  Country: US (occurrence: US)
  Receive Date: 20160111
  Receipt Date: 20160111
  Transmission Date: 20160526
  Serious: No
  Sender: FDA-Public Use
  Company Number: US-GALDERMA-US15007950

PATIENT
  Age: 64 Year
  Sex: Female

DRUGS (4)
  1. ESTEE LAUDER VERITE [Concomitant]
     Indication: DRY SKIN PROPHYLAXIS
     Route: 061
  2. MILK BASED CLEANSER [Concomitant]
     Indication: THERAPEUTIC SKIN CARE TOPICAL
     Route: 061
  3. VERADERM SUN BLOCK [Concomitant]
     Indication: PROPHYLAXIS AGAINST SOLAR RADIATION
     Route: 061
  4. SOOLANTRA [Suspect]
     Active Substance: IVERMECTIN
     Indication: FLUSHING
     Dosage: 1%
     Route: 061
     Dates: start: 20151020

REACTIONS (3)
  - Inappropriate schedule of drug administration [Recovered/Resolved]
  - Therapeutic response unexpected [Recovered/Resolved]
  - Product use issue [Recovered/Resolved]

NARRATIVE: CASE EVENT DATE: 20151020
